FAERS Safety Report 6755468-2 (Version None)
Quarter: 2010Q2

REPORT INFORMATION
  Report Type: 
  Country: None (occurrence: None)
  Receive Date: 20100524
  Receipt Date: 20100301
  Transmission Date: 20101027
  Serious: No
  Sender: FDA-Public Use
  Company Number: 007936

PATIENT
  Sex: Female
  Weight: 86.1 kg

DRUGS (8)
  1. CIMZIA [Suspect]
     Indication: CROHN'S DISEASE
     Dosage: (400 MG SUBCUTANEOUS) ; (200 MG, MONTHLY SUBCUTANEOUS)
     Route: 058
     Dates: start: 20090716, end: 20090730
  2. CIMZIA [Suspect]
     Indication: CROHN'S DISEASE
     Dosage: (400 MG SUBCUTANEOUS) ; (200 MG, MONTHLY SUBCUTANEOUS)
     Route: 058
     Dates: start: 20090825
  3. BUSPIRONE HCL [Suspect]
     Indication: ANXIETY
     Dosage: (15 MG, DAILY ORAL)
     Route: 048
     Dates: start: 20100101
  4. VITAMIN B-12 [Concomitant]
  5. AMLODIPINE [Concomitant]
  6. METOPROLOL [Concomitant]
  7. SERTRALINE HCL [Concomitant]
  8. AZMACORT [Concomitant]

REACTIONS (6)
  - ABDOMINAL PAIN [None]
  - DRY MOUTH [None]
  - ECZEMA [None]
  - INAPPROPRIATE SCHEDULE OF DRUG ADMINISTRATION [None]
  - PARAESTHESIA [None]
  - VITAMIN B12 DEFICIENCY [None]
